FAERS Safety Report 7478817-9 (Version None)
Quarter: 2011Q2

REPORT INFORMATION
  Report Type: 
  Country: None (occurrence: None)
  Receive Date: 20110513
  Receipt Date: 20110506
  Transmission Date: 20111010
  Serious: Yes (Death)
  Sender: FDA-Public Use
  Company Number: US-AMGEN-USASP2011018839

PATIENT
  Age: 82 Year
  Sex: Male
  Weight: 73 kg

DRUGS (6)
  1. NPLATE [Suspect]
     Indication: IDIOPATHIC THROMBOCYTOPENIC PURPURA
     Dosage: 200 A?G, PRN
     Route: 058
     Dates: start: 20100405, end: 20100901
  2. PROTONIX [Concomitant]
     Dosage: 40 MG, BID
     Route: 048
     Dates: start: 20100310, end: 20101004
  3. PROPRANOLOL [Concomitant]
     Dosage: 20 MG, TID
     Route: 048
     Dates: start: 20100310, end: 20101004
  4. TERAZOSIN HCL [Concomitant]
     Dosage: 1 MG, QHS
     Route: 048
     Dates: start: 20100308, end: 20101004
  5. LASIX [Concomitant]
     Dosage: 60 MG, QD
     Route: 048
     Dates: start: 20100908, end: 20101004
  6. RITUXIMAB [Concomitant]

REACTIONS (2)
  - CARDIAC FAILURE CONGESTIVE [None]
  - ECONOMIC PROBLEM [None]
